FAERS Safety Report 5796138-7 (Version None)
Quarter: 2008Q3

REPORT INFORMATION
  Report Type: 
  Country: None (occurrence: None)
  Receive Date: 20080701
  Receipt Date: 20080627
  Transmission Date: 20090109
  Serious: Yes (Hospitalization, Other)
  Sender: FDA-Public Use
  Company Number: FR-BRISTOL-MYERS SQUIBB COMPANY-14239891

PATIENT
  Age: 79 Year
  Sex: Female

DRUGS (3)
  1. COUMADIN [Suspect]
     Indication: PULMONARY EMBOLISM
     Dosage: STOPPED ON 04DEC07 AND AGAIN RESTARTED
     Dates: start: 20071130
  2. LOVENOX [Suspect]
     Indication: PULMONARY EMBOLISM
     Dates: start: 20071128, end: 20071204
  3. INNOHEP [Suspect]
     Indication: PULMONARY EMBOLISM
     Dosage: ANTI-XA/0.7ML/D
     Dates: start: 20071127, end: 20071204

REACTIONS (2)
  - HAEMATOMA [None]
  - RENAL FAILURE ACUTE [None]
